FAERS Safety Report 5642390-8 (Version None)
Quarter: 2008Q1

REPORT INFORMATION
  Report Type: 
  Country: None (occurrence: None)
  Receive Date: 20080131
  Receipt Date: 20071126
  Transmission Date: 20080703
  Serious: No
  Sender: FDA-Public Use
  Company Number: US200711006096

PATIENT
  Age: 82 Year
  Sex: Female
  Weight: 83 kg

DRUGS (10)
  1. BYETTA [Suspect]
     Indication: TYPE 2 DIABETES MELLITUS
     Dosage: SEE IMAGE
     Route: 058
     Dates: start: 20061101, end: 20061201
  2. BYETTA [Suspect]
     Indication: TYPE 2 DIABETES MELLITUS
     Dosage: SEE IMAGE
     Route: 058
     Dates: start: 20061201, end: 20070101
  3. BYETTA [Suspect]
     Indication: TYPE 2 DIABETES MELLITUS
     Dosage: SEE IMAGE
     Route: 058
     Dates: start: 20070201, end: 20070301
  4. BYETTA [Suspect]
     Indication: TYPE 2 DIABETES MELLITUS
     Dosage: SEE IMAGE
     Route: 058
     Dates: start: 20070301
  5. LEVEMIR (INSULIN DETEMIR) [Concomitant]
  6. HUMULIN R [Concomitant]
  7. BENACORT (BUDESONIDE) [Concomitant]
  8. ANTI-DIABETICS (SITAGLIPTIN) [Concomitant]
  9. SYMLIN [Concomitant]
  10. ELECTROLYTE SOLUTIONS [Concomitant]

REACTIONS (4)
  - BLOOD GLUCOSE INCREASED [None]
  - DYSPEPSIA [None]
  - MUSCLE SPASMS [None]
  - WEIGHT DECREASED [None]
